FAERS Safety Report 6652569-4 (Version None)
Quarter: 2010Q1

REPORT INFORMATION
  Report Type: 
  Country: None (occurrence: None)
  Receive Date: 20100325
  Receipt Date: 20100325
  Transmission Date: 20100710
  Serious: Yes (Other)
  Sender: FDA-Public Use
  Company Number: None

PATIENT
  Age: 52 Year
  Sex: Male
  Weight: 80.7403 kg

DRUGS (2)
  1. LEVAQUIN [Suspect]
     Indication: PROSTATIC DISORDER
     Dosage: 1 TABLET DAILY PO
     Route: 048
     Dates: start: 20080527, end: 20080603
  2. CIPROFLOXACIN [Suspect]
     Indication: SURGERY
     Dosage: 1 TABLET BID PO
     Route: 048
     Dates: start: 20080701, end: 20080703

REACTIONS (7)
  - ARTHRALGIA [None]
  - IMPAIRED WORK ABILITY [None]
  - JOINT INJURY [None]
  - MUSCULAR WEAKNESS [None]
  - MUSCULOSKELETAL PAIN [None]
  - TENDON PAIN [None]
  - TENDON RUPTURE [None]
